FAERS Safety Report 21389537 (Version 3)
Quarter: 2022Q4

REPORT INFORMATION
  Report Type: Spontaneous
  Country: US (occurrence: US)
  Receive Date: 20220929
  Receipt Date: 20221007
  Transmission Date: 20230113
  Serious: Yes (Hospitalization)
  Sender: FDA-Public Use
  Company Number: US-ROCHE-3187377

PATIENT
  Age: 75 Year
  Sex: Female

DRUGS (4)
  1. BONIVA [Suspect]
     Active Substance: IBANDRONATE SODIUM
     Indication: Product used for unknown indication
     Route: 048
     Dates: end: 20090430
  2. LISINOPRIL [Concomitant]
     Active Substance: LISINOPRIL
     Dosage: 20/12.5MG
     Route: 048
     Dates: end: 20090506
  3. VYTORIN [Concomitant]
     Active Substance: EZETIMIBE\SIMVASTATIN
     Route: 048
     Dates: end: 20090504
  4. ASPIRIN [Concomitant]
     Active Substance: ASPIRIN
     Route: 048
     Dates: end: 20090430

REACTIONS (2)
  - Vaginal prolapse [Unknown]
  - Hypertonic bladder [Unknown]
